FAERS Safety Report 6141896-5 (Version None)
Quarter: 2009Q2

REPORT INFORMATION
  Report Type: 
  Country: None (occurrence: None)
  Receive Date: 20090402
  Receipt Date: 20090324
  Transmission Date: 20091009
  Serious: Yes (Other)
  Sender: FDA-Public Use
  Company Number: PHHY2009DE11049

PATIENT
  Sex: Male

DRUGS (3)
  1. DIOVAN [Suspect]
     Indication: HYPERTENSION
     Dosage: 80 MG, QD
     Route: 048
     Dates: start: 20070101, end: 20081101
  2. DIOVAN [Suspect]
     Dosage: 80 MG, QD
     Route: 048
     Dates: start: 20081201, end: 20090301
  3. IBUPROFEN [Concomitant]
     Dosage: UNK

REACTIONS (8)
  - BLISTER [None]
  - DERMATITIS PSORIASIFORM [None]
  - DIZZINESS [None]
  - NEURODERMATITIS [None]
  - PEMPHIGUS [None]
  - PRURITUS [None]
  - RASH [None]
  - RASH MACULAR [None]
